FAERS Safety Report 25394096 (Version 1)
Quarter: 2025Q2

REPORT INFORMATION
  Report Type: Spontaneous
  Country: US (occurrence: US)
  Receive Date: 20250604
  Receipt Date: 20250604
  Transmission Date: 20250717
  Serious: No
  Sender: ROCHE
  Company Number: US-ROCHE-10000294911

PATIENT
  Age: 8 Year
  Sex: Female

DRUGS (19)
  1. RITUXIMAB [Suspect]
     Active Substance: RITUXIMAB
     Indication: Encephalitis autoimmune
     Route: 065
  2. LEVETIRACETAM [Concomitant]
     Active Substance: LEVETIRACETAM
  3. LACOSAMIDE [Concomitant]
     Active Substance: LACOSAMIDE
  4. VALPROATE [Concomitant]
     Active Substance: VALPROIC ACID
  5. BRIVARACETAM [Concomitant]
     Active Substance: BRIVARACETAM
  6. CLOBAZAM [Concomitant]
     Active Substance: CLOBAZAM
  7. PHENOBARBITAL [Concomitant]
     Active Substance: PHENOBARBITAL
  8. CENOBAMATE [Concomitant]
     Active Substance: CENOBAMATE
  9. CANNABIDIOL [Concomitant]
     Active Substance: CANNABIDIOL
  10. PERAMPANEL [Concomitant]
     Active Substance: PERAMPANEL
  11. MIDAZOLAM [Concomitant]
     Active Substance: MIDAZOLAM
  12. DEXMEDETOMIDINE [Concomitant]
     Active Substance: DEXMEDETOMIDINE
  13. CANNABIDIOL [Concomitant]
     Active Substance: CANNABIDIOL
  14. DIVALPROEX SODIUM [Concomitant]
     Active Substance: DIVALPROEX SODIUM
  15. METHYLPREDNISOLONE [Concomitant]
     Active Substance: METHYLPREDNISOLONE
     Route: 042
  16. ANAKINRA [Concomitant]
     Active Substance: ANAKINRA
  17. ANAKINRA [Concomitant]
     Active Substance: ANAKINRA
  18. TOCILIZUMAB [Concomitant]
     Active Substance: TOCILIZUMAB
  19. BARICITINIB [Concomitant]
     Active Substance: BARICITINIB

REACTIONS (2)
  - Urinary tract infection [Unknown]
  - Pneumonia [Unknown]
